FAERS Safety Report 7973094-4 (Version None)
Quarter: 2011Q4

REPORT INFORMATION
  Report Type: 
  Country: None (occurrence: None)
  Receive Date: 20111213
  Receipt Date: 20111205
  Transmission Date: 20120403
  Serious: Yes (Hospitalization, Other)
  Sender: FDA-Public Use
  Company Number: US-ASTELLAS-2011US008130

PATIENT

DRUGS (15)
  1. PROGRAF [Suspect]
     Indication: LIVER TRANSPLANT
     Dosage: 5 MG, BID
     Route: 048
     Dates: start: 20100827
  2. MAGNESIUM OXIDE [Concomitant]
     Indication: BONE DISORDER
     Dosage: 40 MG, BID
     Route: 048
     Dates: start: 20110204
  3. ZEMPLAR [Concomitant]
     Indication: PRODUCT USED FOR UNKNOWN INDICATION
     Dosage: 1 MG, UID/QD
     Route: 048
     Dates: start: 20110601
  4. MYCOPHENOLATE MOFETIL (CELLCEPT) [Concomitant]
     Indication: LIVER TRANSPLANT
     Dosage: 500 MG, BID
     Route: 048
     Dates: start: 20100827
  5. RISPERDAL [Concomitant]
     Indication: SEDATIVE THERAPY
  6. ASPIRIN [Concomitant]
     Indication: ANTICOAGULANT THERAPY
     Dosage: 81 MG, UID/QD
     Route: 048
     Dates: start: 19970101
  7. DIFLUCAN [Concomitant]
     Indication: BLOOD PRESSURE
     Dosage: 100 MG, UID/QD
     Route: 048
     Dates: start: 20100902
  8. CARDURA [Concomitant]
     Indication: ANTIBIOTIC THERAPY
     Dosage: 4 MG, BID
     Route: 048
     Dates: start: 20110204
  9. LASIX [Concomitant]
     Indication: DIURETIC THERAPY
     Dosage: 60 MG, BID
     Route: 048
     Dates: start: 20110624
  10. NEXIUM [Concomitant]
     Indication: GASTROOESOPHAGEAL REFLUX DISEASE
     Dosage: 40 MG, UID/QD
     Route: 048
     Dates: start: 20100902
  11. RISPERDAL [Concomitant]
     Indication: DEPRESSION
     Dosage: 1 MG, UID/QD
     Route: 048
     Dates: start: 20110909
  12. AMBIEN [Concomitant]
     Indication: SLEEP DISORDER
     Dosage: 10 MG, UID/QD
     Route: 048
     Dates: start: 20100922
  13. CRESTOR [Concomitant]
     Indication: BLOOD CHOLESTEROL
     Dosage: 10 MG, UID/QD
     Route: 048
     Dates: start: 20110624
  14. ACTIGALL [Concomitant]
     Indication: PRODUCT USED FOR UNKNOWN INDICATION
     Dosage: 300 MG, TID
     Route: 048
     Dates: start: 20100902
  15. HUMALOG [Concomitant]
     Indication: DIABETES MELLITUS
     Dosage: 4 ML, BID
     Route: 050
     Dates: start: 20100902

REACTIONS (2)
  - RENAL FAILURE CHRONIC [None]
  - COMA [None]
